FAERS Safety Report 6955652-9 (Version None)
Quarter: 2010Q3

REPORT INFORMATION
  Report Type: 
  Country: None (occurrence: None)
  Receive Date: 20100830
  Receipt Date: 20100820
  Transmission Date: 20110219
  Serious: Yes (Other)
  Sender: FDA-Public Use
  Company Number: CO-ROCHE-699467

PATIENT
  Sex: Female

DRUGS (5)
  1. AVASTIN [Suspect]
     Indication: BREAST CANCER
     Route: 042
     Dates: start: 20090908, end: 20100714
  2. CAPTOPRIL [Concomitant]
     Dosage: FREQUENCY: QD
     Route: 048
  3. CARBAMAZEPINE [Concomitant]
     Indication: PAIN
     Dosage: FREQUENCY: QD
     Route: 048
  4. TRAZODONE HCL [Concomitant]
     Indication: PAIN
     Dosage: FREQUENCY: QD
     Route: 048
  5. ACETAMINOPHEN [Concomitant]
     Indication: PAIN
     Route: 048

REACTIONS (1)
  - CONVULSION [None]
